FAERS Safety Report 5276524-4 (Version None)
Quarter: 2007Q1

REPORT INFORMATION
  Report Type: 
  Country: None (occurrence: None)
  Receive Date: 20061213
  Receipt Date: 20031013
  Transmission Date: 20070707
  Serious: No
  Sender: FDA-Public Use
  Company Number: 2003UW13230

PATIENT

DRUGS (3)
  1. SEROQUEL [Suspect]
     Indication: SCHIZOPHRENIA
  2. EFFEXOR [Suspect]
  3. NEURONTIN [Suspect]

REACTIONS (3)
  - BRADYCARDIA [None]
  - HYPOTENSION [None]
  - OVERDOSE [None]
